FAERS Safety Report 9815022 (Version 1)
Quarter: 2014Q1

REPORT INFORMATION
  Report Type: Spontaneous
  Country: US (occurrence: US)
  Receive Date: 20140114
  Receipt Date: 20140114
  Transmission Date: 20141002
  Serious: Yes (Hospitalization, Other)
  Sender: FDA-Public Use
  Company Number: US-AMGEN-USASP2014001786

PATIENT
  Age: 53 Year
  Sex: Male

DRUGS (1)
  1. ENBREL [Suspect]
     Indication: RHEUMATOID ARTHRITIS
     Dosage: 50 MG, QWK
     Route: 065
     Dates: start: 20101004

REACTIONS (9)
  - Hernia [Recovered/Resolved]
  - Gastrooesophageal sphincter insufficiency [Recovered/Resolved]
  - Loss of consciousness [Recovered/Resolved]
  - Arrhythmia [Recovered/Resolved]
  - Spinal pain [Recovered/Resolved]
  - Asthenia [Not Recovered/Not Resolved]
  - Irritable bowel syndrome [Not Recovered/Not Resolved]
  - Abdominal discomfort [Not Recovered/Not Resolved]
  - Fungal infection [Not Recovered/Not Resolved]
